FAERS Safety Report 5042991-4 (Version None)
Quarter: 2006Q2

REPORT INFORMATION
  Report Type: 
  Country: None (occurrence: None)
  Receive Date: 20060628
  Receipt Date: 20060616
  Transmission Date: 20061013
  Serious: Yes (Hospitalization)
  Sender: FDA-Public Use
  Company Number: 222422

PATIENT
  Age: 62 Year
  Sex: Male
  Weight: 57 kg

DRUGS (6)
  1. MABTHERA (RITUXIMAB) CONC FOR SOLUTION FOR INFUSION [Suspect]
     Indication: CHRONIC LYMPHOCYTIC LEUKAEMIA
     Dosage: 785 MG, Q4W, INTRAVENOUS
     Route: 042
     Dates: start: 20051103
  2. FLUDARABINE [Suspect]
     Indication: CHRONIC LYMPHOCYTIC LEUKAEMIA
     Dosage: 40 MG, INTRAVENOUS
     Route: 042
     Dates: start: 20051103
  3. CYCLOPHOSPHAMIDE [Suspect]
     Indication: CHRONIC LYMPHOCYTIC LEUKAEMIA
     Dosage: 390 MG, INTRAVENOUS
     Route: 042
     Dates: start: 20051103, end: 20060221
  4. BACTRIM [Concomitant]
  5. VALTREX [Concomitant]
  6. FLUCONAZOLE [Concomitant]

REACTIONS (3)
  - CYSTITIS HAEMORRHAGIC [None]
  - FLUID INTAKE REDUCED [None]
  - POST PROCEDURAL COMPLICATION [None]
